FAERS Safety Report 6383879-6 (Version None)
Quarter: 2009Q4

REPORT INFORMATION
  Report Type: 
  Country: None (occurrence: None)
  Receive Date: 20091001
  Receipt Date: 20090923
  Transmission Date: 20100525
  Serious: Yes (Other)
  Sender: FDA-Public Use
  Company Number: FR-B.I. PHARMACEUTICALS,INC./RIDGEFIELD-2009-FF-00415FF

PATIENT
  Sex: Male
  Weight: 85 kg

DRUGS (2)
  1. MECIR LP 0.4 [Suspect]
     Indication: BENIGN PROSTATIC HYPERPLASIA
     Dosage: 0.4 MG
     Route: 048
  2. MECIR LP 0.4 [Suspect]
     Dosage: 0.4 MG
     Route: 048

REACTIONS (1)
  - DRUG INEFFECTIVE [None]
